FAERS Safety Report 6198118-9 (Version None)
Quarter: 2009Q2

REPORT INFORMATION
  Report Type: 
  Country: None (occurrence: None)
  Receive Date: 20090519
  Receipt Date: 20090331
  Transmission Date: 20091009
  Serious: No
  Sender: FDA-Public Use
  Company Number: 2009-194323-NL

PATIENT
  Sex: Female

DRUGS (3)
  1. REMERON SOLTAB [Suspect]
  2. CYTOMEL [Suspect]
  3. SYNTHROID [Concomitant]

REACTIONS (2)
  - DRUG INTERACTION [None]
  - HEART RATE INCREASED [None]
